FAERS Safety Report 13401426 (Version 4)
Quarter: 2017Q4

REPORT INFORMATION
  Report Type: Report from Study
  Country: None (occurrence: ES)
  Receive Date: 20170404
  Receipt Date: 20171106
  Transmission Date: 20180320
  Serious: Yes (Hospitalization, Other)
  Sender: FDA-Public Use
  Company Number: ES-ABBVIE-17P-144-1923586-00

PATIENT
  Age: 28 Year
  Sex: Female
  Weight: 54 kg

DRUGS (2)
  1. HUMIRA [Suspect]
     Active Substance: ADALIMUMAB
     Indication: CROHN^S DISEASE
     Route: 058
     Dates: start: 2017
  2. HUMIRA [Suspect]
     Active Substance: ADALIMUMAB
     Indication: CROHN^S DISEASE
     Route: 058
     Dates: start: 20160926, end: 2017

REACTIONS (10)
  - Crohn^s disease [Not Recovered/Not Resolved]
  - Constipation [Recovered/Resolved]
  - Papilloma viral infection [Recovered/Resolved]
  - Hypomenorrhoea [Recovering/Resolving]
  - Procedural pain [Not Recovered/Not Resolved]
  - Wrong technique in device usage process [Unknown]
  - Arthralgia [Not Recovered/Not Resolved]
  - Pneumothorax [Recovered/Resolved]
  - Dysmenorrhoea [Not Recovered/Not Resolved]
  - Fatigue [Recovered/Resolved]

NARRATIVE: CASE EVENT DATE: 201609
